FAERS Safety Report 8611508-7 (Version None)
Quarter: 2012Q3

REPORT INFORMATION
  Report Type: 
  Country: None (occurrence: None)
  Receive Date: 20120809
  Receipt Date: 20120725
  Transmission Date: 20120928
  Serious: Yes (Death, Hospitalization, Other)
  Sender: FDA-Public Use
  Company Number: 2012MA009094

PATIENT
  Age: 4 Year
  Sex: Female

DRUGS (3)
  1. OXYCODONE AND ACETAMINOPHEN [Suspect]
     Dosage: PO
     Route: 048
  2. ALPRAZOLAM [Suspect]
     Dosage: PO
     Route: 048
  3. KADIAN [Suspect]
     Dosage: PO
     Route: 048

REACTIONS (8)
  - HYPOTENSION [None]
  - MYDRIASIS [None]
  - BRAIN OEDEMA [None]
  - CONVULSION [None]
  - BRAIN DEATH [None]
  - BREATH SOUNDS ABNORMAL [None]
  - RESPIRATORY RATE DECREASED [None]
  - BRAIN HERNIATION [None]
